FAERS Safety Report 6366413-6 (Version None)
Quarter: 2009Q3

REPORT INFORMATION
  Report Type: 
  Country: None (occurrence: None)
  Receive Date: 20090921
  Receipt Date: 20090908
  Transmission Date: 20100115
  Serious: Yes (Other)
  Sender: FDA-Public Use
  Company Number: US-ROCHE-552254

PATIENT
  Sex: Female
  Weight: 52.2 kg

DRUGS (4)
  1. ACCUTANE [Suspect]
     Indication: ACNE
     Dosage: PRESCRIPTION FILLED 02 SEP 2003
     Route: 065
     Dates: start: 20030902
  2. ACCUTANE [Suspect]
     Dosage: ALTERNATE 40 MG/DAY WITH 80 MG/DAY.  PRESCRIPTIONS FILLED 11 NOVEMBER 2003 AND 03 DECEMBER 2003.
     Route: 065
     Dates: start: 20031107, end: 20031201
  3. AMNESTEEM [Suspect]
     Indication: ACNE
     Dosage: PRESCRIPTION FILLED 06 NOVEMBER 2003
     Route: 065
     Dates: start: 20031006, end: 20031101
  4. AMNESTEEM [Suspect]
     Dosage: PRESCRIPTION FILLED 23 JANUARY 2004
     Route: 065
     Dates: start: 20040123, end: 20040201

REACTIONS (16)
  - BACK PAIN [None]
  - BIPOLAR DISORDER [None]
  - COLITIS ULCERATIVE [None]
  - CROHN'S DISEASE [None]
  - DEPRESSION [None]
  - DRY EYE [None]
  - DRY SKIN [None]
  - ERYTHEMA [None]
  - FATIGUE [None]
  - INFLAMMATORY BOWEL DISEASE [None]
  - LIP DRY [None]
  - MYALGIA [None]
  - OBSESSIVE-COMPULSIVE DISORDER [None]
  - SACROILIITIS [None]
  - SCAR [None]
  - SKIN DISCOLOURATION [None]
